FAERS Safety Report 18366497 (Version 3)
Quarter: 2020Q4

REPORT INFORMATION
  Report Type: Spontaneous
  Country: US (occurrence: US)
  Receive Date: 20201009
  Receipt Date: 20201125
  Transmission Date: 20210114
  Serious: No
  Sender: FDA-Public Use
  Company Number: US-PFIZER INC-2020380821

PATIENT
  Age: 14 Year
  Sex: Male
  Weight: 60.78 kg

DRUGS (1)
  1. GENOTROPIN [Suspect]
     Active Substance: SOMATROPIN
     Indication: GROWTH HORMONE DEFICIENCY
     Dosage: 2.4 MG, 1X/DAY
     Dates: start: 20200925

REACTIONS (3)
  - Liquid product physical issue [Unknown]
  - Device use error [Unknown]
  - Drug dose omission by device [Unknown]
